FAERS Safety Report 8419355-6 (Version None)
Quarter: 2012Q2

REPORT INFORMATION
  Report Type: 
  Country: None (occurrence: None)
  Receive Date: 20120607
  Receipt Date: 20120328
  Transmission Date: 20120825
  Serious: Yes (Death)
  Sender: FDA-Public Use
  Company Number: US-EISAI INC-E2080-00436-SPO-US

PATIENT
  Age: 17 Year
  Sex: Female
  Weight: 63.2 kg

DRUGS (4)
  1. BANZEL [Suspect]
     Route: 048
  2. ATIVAN [Concomitant]
     Route: 048
     Dates: end: 20110101
  3. SABRIL [Concomitant]
     Route: 048
  4. LAMICTAL [Concomitant]
     Route: 048

REACTIONS (1)
  - SUDDEN UNEXPLAINED DEATH IN EPILEPSY [None]
